FAERS Safety Report 6911592-2 (Version None)
Quarter: 2010Q3

REPORT INFORMATION
  Report Type: 
  Country: None (occurrence: None)
  Receive Date: 20100806
  Receipt Date: 20100727
  Transmission Date: 20110219
  Serious: Yes (Hospitalization, Other)
  Sender: FDA-Public Use
  Company Number: JP-PFIZER INC-2010098430

PATIENT
  Sex: Female

DRUGS (5)
  1. CELECOX [Suspect]
     Dosage: 200 MG DAILY
     Route: 048
     Dates: start: 20100617
  2. TELMISARTAN [Suspect]
     Dosage: 40 MG DAILY
     Route: 048
  3. BEZAFIBRATE [Concomitant]
  4. MENATETRENONE [Concomitant]
  5. TEPRENONE [Concomitant]
     Dosage: UNK
     Dates: start: 20100617

REACTIONS (6)
  - DIZZINESS [None]
  - FALL [None]
  - LOSS OF CONSCIOUSNESS [None]
  - LUMBAR VERTEBRAL FRACTURE [None]
  - PRURITUS [None]
  - SKIN LACERATION [None]
